FAERS Safety Report 8038832-3 (Version None)
Quarter: 2012Q1

REPORT INFORMATION
  Report Type: 
  Country: None (occurrence: None)
  Receive Date: 20120111
  Receipt Date: 20111207
  Transmission Date: 20120608
  Serious: No
  Sender: FDA-Public Use
  Company Number: US-AMGEN-USASP2011065270

PATIENT
  Age: 56 Year
  Sex: Male

DRUGS (1)
  1. ENBREL [Suspect]
     Indication: PRODUCT USED FOR UNKNOWN INDICATION
     Dosage: 50 MG, ONCE IN 9 DAYS
     Dates: start: 20110416

REACTIONS (3)
  - PRODUCTIVE COUGH [None]
  - FATIGUE [None]
  - NASOPHARYNGITIS [None]
